FAERS Safety Report 9500491 (Version 2)
Quarter: 2013Q2

REPORT INFORMATION
  Report Type: Spontaneous
  Country: US (occurrence: None)
  Receive Date: 20130124
  Receipt Date: 20130418
  Transmission Date: 20140414
  Serious: Yes (Hospitalization)
  Sender: FDA-Public Use
  Company Number: 2012PROUSA02166

PATIENT
  Age: 72 Year
  Sex: Male
  Weight: 116.6 kg

DRUGS (13)
  1. PROVENGE (SIPULEUCEL-T) SUSPENSION, 250ML [Suspect]
     Indication: PROSTATE CANCER METASTATIC
     Dosage: 250ML, SINGLE, INTRAVENOUS
     Route: 042
     Dates: start: 20121008, end: 20121008
  2. METFORMIN (METFORMIN HYDROCHLORIDE) [Concomitant]
  3. PROTONIX (PANTOPRAZOLE SODIUM SESQUIHYDRATE) [Concomitant]
  4. ZYTIGA (ABIRATERONE ACETATE) [Concomitant]
  5. ASPIRIN (ACETYLSALICYLIC ACID) [Concomitant]
  6. CELEBREX (CELECOXIB) [Concomitant]
  7. CRESTOR (ROSUVASTATIN CALCIUM) [Concomitant]
  8. DOXAZOSIN (DOXAZOSIN MESILATE) [Concomitant]
  9. METOPROLOL (METOPROLOL TARTRATE) [Concomitant]
  10. LOSARTAN (LOSARTAN POTASSIUM) [Concomitant]
  11. LEVOTHYROXINE (LEVOTHYROXINE SODIUM) [Concomitant]
  12. HYDROCODONE/GUAIFENESIN (GUAIFENESIN, HYDROCODONE BITARTRATE) [Concomitant]
  13. ZOFRAN (ONDANSETRON HYDROCHLORIDE) [Concomitant]

REACTIONS (4)
  - Device related infection [None]
  - Device malfunction [None]
  - Vein disorder [None]
  - Urinary tract infection [None]
